FAERS Safety Report 13232397 (Version 1)
Quarter: 2017Q1

REPORT INFORMATION
  Report Type: Spontaneous
  Country: US (occurrence: US)
  Receive Date: 20170214
  Receipt Date: 20170214
  Transmission Date: 20170428
  Serious: No
  Sender: FDA-Public Use
  Company Number: US-B.I. PHARMACEUTICALS,INC./RIDGEFIELD-2017-BI-007012

PATIENT
  Age: 67 Year
  Sex: Female

DRUGS (3)
  1. PRENDISONE [Concomitant]
     Indication: PRODUCT USED FOR UNKNOWN INDICATION
     Dosage: EVERY 6 HOURS;  FORM STRENGTH: 40MG; FORMULATION: CAPLET
     Route: 048
     Dates: start: 20170205
  2. DIGOXIN. [Concomitant]
     Active Substance: DIGOXIN
     Indication: CARDIAC FAILURE
     Dosage: ONE CAPLET DAILY;  FORM STRENGTH: 0.25MG; FORMULATION: CAPLET
     Route: 048
     Dates: start: 201609
  3. TRADJENTA [Suspect]
     Active Substance: LINAGLIPTIN
     Indication: DIABETES MELLITUS
     Dosage: ONE TABLET DAILY;  FORM STRENGTH: 5 MG; FORMULATION: TABLET? ADMINISTRATION CORRECT? YES ?ACTION(S)
     Route: 048
     Dates: start: 20170205

REACTIONS (1)
  - Blood glucose increased [Unknown]

NARRATIVE: CASE EVENT DATE: 20170206
